FAERS Safety Report 8844992 (Version 2)
Quarter: 2012Q4

REPORT INFORMATION
  Report Type: Spontaneous
  Country: US (occurrence: None)
  Receive Date: 20120925
  Receipt Date: 20120928
  Transmission Date: 20130627
  Serious: Yes (Hospitalization, Other)
  Sender: FDA-Public Use
  Company Number: RB-34162-2011

PATIENT
  Sex: Female

DRUGS (1)
  1. SUBOXONE [Suspect]
     Indication: DRUG DEPENDENCE
     Dosage: (12 mg transplacental)
     Route: 064
     Dates: start: 20110623, end: 20111029

REACTIONS (3)
  - Foetal exposure during pregnancy [None]
  - Drug withdrawal syndrome neonatal [None]
  - Jaundice neonatal [None]
